FAERS Safety Report 4423315-X (Version None)
Quarter: 2004Q3

REPORT INFORMATION
  Report Type: 
  Country: None (occurrence: None)
  Receive Date: 20040811
  Receipt Date: 20040802
  Transmission Date: 20050211
  Serious: Yes (Other)
  Sender: FDA-Public Use
  Company Number: AU-GLAXOSMITHKLINE-B0341680A

PATIENT
  Age: 44 Year
  Sex: Male

DRUGS (2)
  1. ZYBAN [Suspect]
     Dates: end: 20040731
  2. CIPRAMIL [Concomitant]

REACTIONS (3)
  - AGGRESSION [None]
  - NIGHTMARE [None]
  - VERBAL ABUSE [None]
